FAERS Safety Report 9972821 (Version 1)
Quarter: 2014Q1

REPORT INFORMATION
  Report Type: Spontaneous
  Country: NL (occurrence: NL)
  Receive Date: 20140306
  Receipt Date: 20140306
  Transmission Date: 20141002
  Serious: Yes (Life-Threatening, Hospitalization)
  Sender: FDA-Public Use
  Company Number: NL-ROCHE-1355633

PATIENT
  Age: 66 Year
  Sex: Female
  Weight: 63 kg

DRUGS (3)
  1. HERCEPTIN [Suspect]
     Indication: BREAST CANCER
     Route: 042
     Dates: start: 201301
  2. ANASTROZOL [Concomitant]
     Route: 048
     Dates: start: 201306
  3. CALCICHEW D3 [Concomitant]
     Dosage: STRENGTH: 500MG/800IE
     Route: 048
     Dates: start: 201306

REACTIONS (1)
  - Intestinal ischaemia [Recovered/Resolved with Sequelae]
